FAERS Safety Report 4585562-6 (Version None)
Quarter: 2005Q1

REPORT INFORMATION
  Report Type: 
  Country: None (occurrence: None)
  Receive Date: 20050214
  Receipt Date: 20050204
  Transmission Date: 20050727
  Serious: Yes (Hospitalization)
  Sender: FDA-Public Use
  Company Number: 2005-02-0250

PATIENT
  Age: 52 Year
  Sex: Male

DRUGS (5)
  1. TEMODAL [Suspect]
     Indication: METASTASES TO CENTRAL NERVOUS SYSTEM
     Dosage: SEE IMAGE
     Route: 048
     Dates: start: 20040101, end: 20040101
  2. TEMODAL [Suspect]
     Indication: METASTASES TO CENTRAL NERVOUS SYSTEM
     Dosage: SEE IMAGE
     Route: 048
     Dates: start: 20040101, end: 20041220
  3. TEMODAL [Suspect]
     Indication: METASTASES TO CENTRAL NERVOUS SYSTEM
     Dosage: SEE IMAGE
     Route: 048
     Dates: start: 20041216, end: 20041220
  4. MEDROL [Concomitant]
  5. NAVOBAN [Concomitant]

REACTIONS (5)
  - EPILEPSY [None]
  - HYPERTONIA [None]
  - LOSS OF CONSCIOUSNESS [None]
  - LUNG NEOPLASM MALIGNANT [None]
  - MALIGNANT NEOPLASM PROGRESSION [None]
